FAERS Safety Report 20499864 (Version 1)
Quarter: 2022Q1

REPORT INFORMATION
  Report Type: Spontaneous
  Country: GR (occurrence: GR)
  Receive Date: 20220222
  Receipt Date: 20220222
  Transmission Date: 20220423
  Serious: Yes (Other)
  Sender: FDA-Public Use
  Company Number: GR-CELLTRION INC.-2021GR018934

PATIENT

DRUGS (1)
  1. INFLIXIMAB [Suspect]
     Active Substance: INFLIXIMAB
     Indication: Inflammatory bowel disease

REACTIONS (5)
  - Pyoderma gangrenosum [Unknown]
  - Hidradenitis [Unknown]
  - Pustular psoriasis [Unknown]
  - Psoriasis [Unknown]
  - Therapy non-responder [Unknown]
